FAERS Safety Report 18822672 (Version 3)
Quarter: 2021Q1

REPORT INFORMATION
  Report Type: Spontaneous
  Country: DE (occurrence: DE)
  Receive Date: 20210202
  Receipt Date: 20210215
  Transmission Date: 20210419
  Serious: Yes (Congenital Anomaly, Other)
  Sender: FDA-Public Use
  Company Number: DE-ABBVIE-20K-062-3322341-00

PATIENT
  Age: 49 Day
  Sex: Male
  Weight: 1.08 kg

DRUGS (1)
  1. VENCLYXTO [Suspect]
     Active Substance: VENETOCLAX
     Indication: MATERNAL EXPOSURE TIMING UNSPECIFIED
     Route: 064

REACTIONS (3)
  - B-lymphocyte count decreased [Unknown]
  - Foetal exposure during pregnancy [Unknown]
  - Congenital anaemia [Unknown]

NARRATIVE: CASE EVENT DATE: 202003
